FAERS Safety Report 4377743-1 (Version None)
Quarter: 2004Q2

REPORT INFORMATION
  Report Type: 
  Country: None (occurrence: None)
  Receive Date: 20040614
  Receipt Date: 20040607
  Transmission Date: 20050107
  Serious: Yes (Hospitalization)
  Sender: FDA-Public Use
  Company Number: 8159

PATIENT
  Age: 70 Year
  Sex: Male

DRUGS (2)
  1. AMIODARONE HCL [Suspect]
     Dosage: 200 MG DAILY
  2. CAPTOPRIL [Concomitant]

REACTIONS (1)
  - CRYPTOGENIC ORGANIZING PNEUMONIA [None]
